FAERS Safety Report 20876818 (Version 5)
Quarter: 2022Q3

REPORT INFORMATION
  Report Type: Spontaneous
  Country: US (occurrence: US)
  Receive Date: 20220526
  Receipt Date: 20220817
  Transmission Date: 20221026
  Serious: No
  Sender: FDA-Public Use
  Company Number: US-BRISTOL-MYERS SQUIBB COMPANY-2022-033253

PATIENT
  Age: 29 Year
  Sex: Female

DRUGS (1)
  1. ORENCIA [Suspect]
     Active Substance: ABATACEPT
     Indication: Rheumatoid arthritis
     Dosage: BATCH NUMBER: ACB8322, EXPIRE DATE: 31-OCT-2023?BATCH NUMBER : ACD2799, EXPIRY DATE : 29-FEB-2024
     Route: 058
     Dates: start: 20220304

REACTIONS (8)
  - Drug ineffective [Unknown]
  - Pain [Unknown]
  - Arthralgia [Unknown]
  - Joint swelling [Unknown]
  - Migraine [Unknown]
  - Rheumatoid arthritis [Unknown]
  - Joint injury [Unknown]
  - Migraine [Unknown]
